FAERS Safety Report 23593538 (Version 2)
Quarter: 2024Q1

REPORT INFORMATION
  Report Type: Spontaneous
  Country: US (occurrence: US)
  Receive Date: 20240304
  Receipt Date: 20240325
  Transmission Date: 20240410
  Serious: Yes (Death, Life-Threatening, Other)
  Sender: FDA-Public Use
  Company Number: US-GILEAD-2024-0664156

PATIENT
  Sex: Male

DRUGS (1)
  1. YESCARTA [Suspect]
     Active Substance: AXICABTAGENE CILOLEUCEL
     Indication: Follicular lymphoma
     Dosage: UNK, INFUSION (4TH LINE)
     Route: 065
     Dates: start: 20240124, end: 20240124

REACTIONS (4)
  - Death [Fatal]
  - Progressive multifocal leukoencephalopathy [Not Recovered/Not Resolved]
  - JC virus infection [Unknown]
  - Immunosuppression [Unknown]

NARRATIVE: CASE EVENT DATE: 20240101
